FAERS Safety Report 16282290 (Version 3)
Quarter: 2021Q4

REPORT INFORMATION
  Report Type: Spontaneous
  Country: US (occurrence: US)
  Receive Date: 20190507
  Receipt Date: 20211116
  Transmission Date: 20220303
  Serious: Yes (Hospitalization, Other)
  Sender: FDA-Public Use
  Company Number: US-PFIZER INC-2019191566

PATIENT
  Age: 77 Year
  Sex: Female
  Weight: 67.13 kg

DRUGS (1)
  1. GEMCITABINE HYDROCHLORIDE [Suspect]
     Active Substance: GEMCITABINE HYDROCHLORIDE
     Dosage: UNK (RECEIVED 10 TREATMENTS)
     Route: 042
     Dates: start: 20181228

REACTIONS (18)
  - Loss of consciousness [Recovering/Resolving]
  - Renal impairment [Recovering/Resolving]
  - Hypertension [Recovering/Resolving]
  - Cerebral haemorrhage [Unknown]
  - Seizure [Unknown]
  - Thrombotic microangiopathy [Recovering/Resolving]
  - Renal failure [Unknown]
  - Renal injury [Unknown]
  - Coma [Unknown]
  - Drug hypersensitivity [Unknown]
  - Platelet count decreased [Unknown]
  - Memory impairment [Unknown]
  - Speech disorder [Unknown]
  - Cognitive disorder [Unknown]
  - Asthenia [Unknown]
  - Fatigue [Unknown]
  - Proteinuria [Unknown]
  - Quality of life decreased [Unknown]

NARRATIVE: CASE EVENT DATE: 20190413
